FAERS Safety Report 8407462-3 (Version None)
Quarter: 2012Q2

REPORT INFORMATION
  Report Type: 
  Country: None (occurrence: None)
  Receive Date: 20120529
  Receipt Date: 20120514
  Transmission Date: 20120825
  Serious: Yes (Hospitalization)
  Sender: FDA-Public Use
  Company Number: 2012MA006116

PATIENT
  Age: 24 Year
  Sex: Male

DRUGS (20)
  1. METOCLOPRAMIDE HYDROCHLORIDE [Suspect]
     Dosage: 20 MG;QD
  2. CLINDAMYCIN [Concomitant]
  3. MAGNESIUM SULFATE [Concomitant]
  4. METOPROLOL [Concomitant]
  5. FENTANYL [Concomitant]
  6. DEXAVEN [Concomitant]
  7. AMIODARONE HCL [Concomitant]
  8. FUROSEMIDE [Concomitant]
  9. HEPARIN [Concomitant]
  10. VOLUVEN [Concomitant]
  11. MANNITOL [Concomitant]
  12. DELAYED-RELEASE TABLETS USP 40 MG [Concomitant]
  13. POTASSIUM CHLORIDE [Concomitant]
  14. MIDAZOLAM [Concomitant]
  15. NITROGLYCERIN [Concomitant]
  16. PIRACETAM [Concomitant]
  17. CEPHAZOLINE [Concomitant]
  18. PANTOPRAZOLE SODIUM [Concomitant]
  19. AMIKACIN [Concomitant]
  20. TRILAC [Concomitant]

REACTIONS (21)
  - PYREXIA [None]
  - TREMOR [None]
  - ANXIETY [None]
  - HYPOTHERMIA [None]
  - DYSTONIA [None]
  - NERVOUS SYSTEM DISORDER [None]
  - TACHYPNOEA [None]
  - GASTROINTESTINAL HYPOMOTILITY [None]
  - BLOOD PRESSURE SYSTOLIC INCREASED [None]
  - EXTRAPYRAMIDAL DISORDER [None]
  - POOR PERIPHERAL CIRCULATION [None]
  - MYDRIASIS [None]
  - MUSCLE SPASMS [None]
  - RESPIRATORY DISORDER [None]
  - PSYCHOMOTOR HYPERACTIVITY [None]
  - HYPERHIDROSIS [None]
  - DYSARTHRIA [None]
  - HAEMORRHAGE [None]
  - TACHYCARDIA [None]
  - DISORIENTATION [None]
  - WHITE BLOOD CELL COUNT INCREASED [None]
